FAERS Safety Report 24800032 (Version 1)
Quarter: 2024Q4

REPORT INFORMATION
  Report Type: Spontaneous
  Country: US (occurrence: None)
  Receive Date: 20241231
  Receipt Date: 20241231
  Transmission Date: 20250114
  Serious: Yes (Hospitalization, Disabling, Other)
  Sender: Public
  Company Number: None

PATIENT
  Age: 31 Year
  Sex: Male
  Weight: 76.5 kg

DRUGS (2)
  1. FINASTERIDE\MINOXIDIL [Suspect]
     Active Substance: FINASTERIDE\MINOXIDIL
     Indication: Alopecia
     Dosage: OTHER QUANTITY : 1 SPRAY(S);?FREQUENCY : DAILY;?
     Route: 061
     Dates: start: 20230501
  2. VITAMIN C [Concomitant]
     Active Substance: ASCORBIC ACID

REACTIONS (9)
  - Nervous system disorder [None]
  - Panic reaction [None]
  - Brain fog [None]
  - Loss of libido [None]
  - Thinking abnormal [None]
  - Panic attack [None]
  - Anxiety [None]
  - Obsessive-compulsive disorder [None]
  - Suicidal ideation [None]

NARRATIVE: CASE EVENT DATE: 20230501
